FAERS Safety Report 5301885-7 (Version None)
Quarter: 2007Q2

REPORT INFORMATION
  Report Type: 
  Country: None (occurrence: None)
  Receive Date: 20070416
  Receipt Date: 20070416
  Transmission Date: 20071010
  Serious: Yes (Life-Threatening, Hospitalization, Disabling, Other)
  Sender: FDA-Public Use
  Company Number: None

PATIENT
  Age: 50 Year
  Weight: 61.2356 kg

DRUGS (5)
  1. WELLBUTRIN SR [Suspect]
     Indication: DEPRESSION
     Dosage: ORAL 150-300MG ONCE PER DAY PO
     Route: 048
     Dates: start: 20010309, end: 20010315
  2. ADDERALL XR 10 [Suspect]
     Indication: ATTENTION DEFICIT/HYPERACTIVITY DISORDER
     Dosage: ORAL 1-3 PER DAY PO
     Route: 048
     Dates: start: 20010309, end: 20010315
  3. AMBIEN [Concomitant]
  4. LEXAPRO [Concomitant]
  5. MODAFINIL [Concomitant]

REACTIONS (4)
  - COMA [None]
  - CONVULSION [None]
  - IRRITABILITY [None]
  - SEROTONIN SYNDROME [None]
